FAERS Safety Report 25155593 (Version 1)
Quarter: 2025Q2

REPORT INFORMATION
  Report Type: Other
  Country: JP (occurrence: JP)
  Receive Date: 20250403
  Receipt Date: 20250403
  Transmission Date: 20250717
  Serious: Yes (Death, Other)
  Sender: Apozeal Pharmaceuticals
  Company Number: JP-Apozeal Pharmaceuticals-2174207

PATIENT
  Sex: Male

DRUGS (1)
  1. RISPERIDONE [Suspect]
     Active Substance: RISPERIDONE
     Indication: Product used for unknown indication

REACTIONS (3)
  - Asphyxia [Fatal]
  - Completed suicide [Fatal]
  - Aspiration [Fatal]
